FAERS Safety Report 16049344 (Version 2)
Quarter: 2019Q2

REPORT INFORMATION
  Report Type: Spontaneous
  Country: MM (occurrence: MM)
  Receive Date: 20190307
  Receipt Date: 20190416
  Transmission Date: 20190711
  Serious: Yes (Hospitalization, Other)
  Sender: FDA-Public Use
  Company Number: MM-GE HEALTHCARE LIFE SCIENCES-2019CSU001206

PATIENT

DRUGS (3)
  1. OMNIPAQUE [Suspect]
     Active Substance: IOHEXOL
     Indication: MALIGNANT ANORECTAL NEOPLASM
  2. OMNIPAQUE [Suspect]
     Active Substance: IOHEXOL
     Indication: RECTAL CANCER
  3. OMNIPAQUE [Suspect]
     Active Substance: IOHEXOL
     Indication: COMPUTERISED TOMOGRAM ABDOMEN
     Dosage: 90 ML, SINGLE
     Route: 042
     Dates: start: 20190226, end: 20190226

REACTIONS (2)
  - Pruritus [Recovered/Resolved]
  - Burning sensation [Recovered/Resolved]

NARRATIVE: CASE EVENT DATE: 20190226
